FAERS Safety Report 6038338-7 (Version None)
Quarter: 2009Q1

REPORT INFORMATION
  Report Type: 
  Country: None (occurrence: None)
  Receive Date: 20090115
  Receipt Date: 20090105
  Transmission Date: 20090719
  Serious: Yes (Other)
  Sender: FDA-Public Use
  Company Number: JP-PFIZER INC-2008154446

PATIENT
  Sex: Male

DRUGS (11)
  1. MIGLITOL [Suspect]
     Indication: DIABETES MELLITUS
     Dosage: UNK
     Route: 048
     Dates: start: 20080918, end: 20081017
  2. RIBALL [Concomitant]
     Dosage: 100 MG, UNK
     Route: 048
     Dates: start: 20080714, end: 20081017
  3. RIBALL [Concomitant]
     Dosage: UNK
     Dates: start: 20081105
  4. MELBIN [Concomitant]
     Indication: DIABETES MELLITUS
  5. ACTOS [Concomitant]
     Indication: DIABETES MELLITUS
  6. LOXONIN [Concomitant]
  7. BASEN [Concomitant]
     Indication: DIABETES MELLITUS
     Dosage: UNK
     Dates: start: 20080701, end: 20080917
  8. BASEN [Concomitant]
     Dosage: UNK
     Dates: start: 20081023
  9. ALL OTHER NON-THERAPEUTIC PRODUCTS [Concomitant]
     Dosage: UNK
     Route: 048
     Dates: start: 20081015
  10. ALL OTHER NON-THERAPEUTIC PRODUCTS [Concomitant]
     Dosage: UNK
     Route: 048
     Dates: start: 20081015
  11. ALL OTHER NON-THERAPEUTIC PRODUCTS [Concomitant]
     Dosage: UNK
     Route: 048
     Dates: start: 20081015

REACTIONS (3)
  - BLOOD CREATINE PHOSPHOKINASE INCREASED [None]
  - MYOGLOBIN BLOOD INCREASED [None]
  - RHABDOMYOLYSIS [None]
